FAERS Safety Report 21557241 (Version 1)
Quarter: 2022Q4

REPORT INFORMATION
  Report Type: Spontaneous
  Country: MX (occurrence: MX)
  Receive Date: 20221105
  Receipt Date: 20221105
  Transmission Date: 20230113
  Serious: Yes (Hospitalization)
  Sender: FDA-Public Use
  Company Number: MX-STRIDES ARCOLAB LIMITED-2022SP014586

PATIENT
  Age: 14 Year
  Sex: Male

DRUGS (6)
  1. CISPLATIN [Suspect]
     Active Substance: CISPLATIN
     Indication: Osteosarcoma metastatic
     Dosage: UNK UNK, CYCLICAL
     Route: 065
  2. EPIRUBICIN [Suspect]
     Active Substance: EPIRUBICIN
     Indication: Osteosarcoma metastatic
     Dosage: UNK UNK, CYCLICAL
     Route: 065
  3. PREDNISOLONE [Suspect]
     Active Substance: PREDNISOLONE
     Indication: Osteosarcoma metastatic
     Dosage: UNK UNK, CYCLICAL
     Route: 065
  4. DEXAMETHASONE [Suspect]
     Active Substance: DEXAMETHASONE
     Indication: Osteosarcoma metastatic
     Dosage: UNK UNK, CYCLICAL
     Route: 065
  5. CYCLOPHOSPHAMIDE [Suspect]
     Active Substance: CYCLOPHOSPHAMIDE
     Indication: Osteosarcoma metastatic
     Dosage: UNK UNK, CYCLICAL
     Route: 065
  6. MESNA [Suspect]
     Active Substance: MESNA
     Indication: Osteosarcoma metastatic
     Dosage: UNK UNK, CYCLICAL
     Route: 065

REACTIONS (4)
  - Seborrhoeic dermatitis [Recovered/Resolved]
  - Folliculitis [Recovered/Resolved]
  - Malassezia infection [Recovered/Resolved]
  - Off label use [Unknown]
